FAERS Safety Report 16984651 (Version 2)
Quarter: 2019Q4

REPORT INFORMATION
  Report Type: Spontaneous
  Country: US (occurrence: US)
  Receive Date: 20191101
  Receipt Date: 20191202
  Transmission Date: 20200122
  Serious: No
  Sender: FDA-Public Use
  Company Number: US-PFIZER INC-2019467209

PATIENT
  Age: 65 Year
  Sex: Female
  Weight: 72.57 kg

DRUGS (4)
  1. CYTOTEC [Suspect]
     Active Substance: MISOPROSTOL
     Indication: GASTROOESOPHAGEAL REFLUX DISEASE
     Dosage: 200 UG, 1X/DAY
     Dates: start: 20191007
  2. CYTOTEC [Suspect]
     Active Substance: MISOPROSTOL
     Indication: NAUSEA
  3. CYTOTEC [Suspect]
     Active Substance: MISOPROSTOL
     Indication: GASTRIC DISORDER
  4. PRILOSEC [Concomitant]
     Active Substance: OMEPRAZOLE MAGNESIUM
     Indication: GASTROOESOPHAGEAL REFLUX DISEASE
     Dosage: 20 MG, UNK

REACTIONS (6)
  - Abdominal pain [Unknown]
  - Off label use [Unknown]
  - Nausea [Unknown]
  - Flatulence [Unknown]
  - Abdominal pain [Not Recovered/Not Resolved]
  - Condition aggravated [Unknown]

NARRATIVE: CASE EVENT DATE: 20191028
